FAERS Safety Report 8799380 (Version 4)
Quarter: 2012Q4

REPORT INFORMATION
  Report Type: 
  Country: JP (occurrence: JP)
  Receive Date: 20120919
  Receipt Date: 20121212
  Transmission Date: 20130627
  Serious: Yes (Hospitalization, Other)
  Sender: FDA-Public Use
  Company Number: JP-ABBOTT-12P-087-0978715-00

PATIENT
  Age: 70 Year
  Sex: Male
  Weight: 72 kg

DRUGS (8)
  1. KLARICID [Suspect]
     Indication: ATYPICAL MYCOBACTERIAL INFECTION
     Route: 048
     Dates: start: 20100729, end: 20111114
  2. RIFAMPICIN [Suspect]
     Indication: ATYPICAL MYCOBACTERIAL INFECTION
     Route: 048
     Dates: start: 20100729, end: 20110801
  3. DABIGATRAN [Suspect]
     Indication: EMBOLIC STROKE
     Route: 048
     Dates: start: 20110809, end: 20111027
  4. DABIGATRAN [Suspect]
  5. ETHAMBUTOL HYDROCHLORIDE [Concomitant]
     Indication: ATYPICAL MYCOBACTERIAL INFECTION
     Route: 048
     Dates: start: 20100805, end: 20111114
  6. RABEPRAZOLE SODIUM [Concomitant]
     Indication: GASTROOESOPHAGEAL REFLUX DISEASE
     Route: 048
     Dates: start: 20100805
  7. WARFARIN POTASSIUM [Concomitant]
     Indication: EMBOLIC STROKE
     Route: 048
     Dates: start: 20111027, end: 20111101
  8. WARFARIN POTASSIUM [Concomitant]
     Dates: start: 20111102

REACTIONS (4)
  - Embolic stroke [Recovering/Resolving]
  - Embolic stroke [Recovered/Resolved]
  - Atrial fibrillation [Not Recovered/Not Resolved]
  - Platelet count decreased [Recovered/Resolved]
